FAERS Safety Report 5339290-X (Version None)
Quarter: 2007Q2

REPORT INFORMATION
  Report Type: 
  Country: None (occurrence: None)
  Receive Date: 20070530
  Receipt Date: 20070524
  Transmission Date: 20071010
  Serious: Yes (Hospitalization)
  Sender: FDA-Public Use
  Company Number: DK-MERCK-0705DNK00006

PATIENT
  Age: 47 Month
  Sex: Male
  Weight: 20 kg

DRUGS (1)
  1. SINGULAIR [Suspect]
     Indication: ASTHMA
     Route: 048
     Dates: start: 20061001, end: 20070502

REACTIONS (1)
  - SKIN HAEMORRHAGE [None]
